FAERS Safety Report 6119745-0 (Version None)
Quarter: 2009Q1

REPORT INFORMATION
  Report Type: 
  Country: None (occurrence: None)
  Receive Date: 20090316
  Receipt Date: 20090309
  Transmission Date: 20090719
  Serious: Yes (Death, Life-Threatening, Hospitalization)
  Sender: FDA-Public Use
  Company Number: DE-MERCK-0902DEU00118

PATIENT
  Age: 14 Year
  Sex: Male
  Weight: 55 kg

DRUGS (6)
  1. CANCIDAS [Suspect]
     Indication: FUNGAL INFECTION
     Route: 042
     Dates: start: 20090127, end: 20090208
  2. CANCIDAS [Suspect]
     Indication: SEPSIS
     Route: 042
     Dates: start: 20090127, end: 20090208
  3. CORTICOSTEROIDS (UNSPECIFIED) [Concomitant]
     Indication: PROPHYLAXIS AGAINST GRAFT VERSUS HOST DISEASE
     Route: 065
  4. CIPROFLOXACIN [Concomitant]
     Indication: SEPSIS
     Route: 065
     Dates: start: 20090127, end: 20090205
  5. FOSFOMYCIN [Concomitant]
     Indication: SEPSIS
     Route: 065
     Dates: start: 20090127, end: 20090207
  6. PRIMAXIN [Concomitant]
     Indication: SEPSIS
     Route: 042
     Dates: start: 20090205, end: 20090207

REACTIONS (11)
  - ACTIVATED PARTIAL THROMBOPLASTIN TIME PROLONGED [None]
  - ACUTE HEPATIC FAILURE [None]
  - BRAIN HERNIATION [None]
  - COAGULOPATHY [None]
  - GRAFT VERSUS HOST DISEASE [None]
  - HAEMOGLOBIN DECREASED [None]
  - ISCHAEMIC HEPATITIS [None]
  - LACTIC ACIDOSIS [None]
  - PLATELET COUNT ABNORMAL [None]
  - PORTAL VEIN THROMBOSIS [None]
  - RENAL FAILURE ACUTE [None]
